FAERS Safety Report 22034560 (Version 2)
Quarter: 2023Q2

REPORT INFORMATION
  Report Type: Spontaneous
  Country: JP (occurrence: JP)
  Receive Date: 20230224
  Receipt Date: 20230414
  Transmission Date: 20230722
  Serious: Yes (Other)
  Sender: FDA-Public Use
  Company Number: JP-OTSUKA-2023_004687

PATIENT
  Sex: Female

DRUGS (1)
  1. ABILIFY [Suspect]
     Active Substance: ARIPIPRAZOLE
     Indication: Psychotic symptom
     Dosage: UNK
     Route: 065

REACTIONS (5)
  - Hallucination, auditory [Unknown]
  - Adverse reaction [Unknown]
  - Delusion of reference [Recovering/Resolving]
  - Anxiety [Unknown]
  - Product use in unapproved indication [Unknown]
